FAERS Safety Report 8245366-X (Version None)
Quarter: 2012Q1

REPORT INFORMATION
  Report Type: 
  Country: None (occurrence: None)
  Receive Date: 20120329
  Receipt Date: 20120327
  Transmission Date: 20120608
  Serious: Yes (Other)
  Sender: FDA-Public Use
  Company Number: US-TEVA-328751USA

PATIENT
  Sex: Female

DRUGS (2)
  1. COPAXONE [Suspect]
     Indication: MULTIPLE SCLEROSIS
     Dosage: 20 MILLIGRAM;
     Route: 058
     Dates: start: 19970101
  2. LISINOPRIL [Suspect]

REACTIONS (3)
  - COUGH [None]
  - BLOOD PRESSURE AMBULATORY ABNORMAL [None]
  - CEREBROVASCULAR ACCIDENT [None]
